FAERS Safety Report 19370219 (Version 2)
Quarter: 2021Q4

REPORT INFORMATION
  Report Type: Spontaneous
  Country: US (occurrence: US)
  Receive Date: 20210603
  Receipt Date: 20211229
  Transmission Date: 20220304
  Serious: Yes (Other)
  Sender: FDA-Public Use
  Company Number: US-GILEAD-2021-0534074

PATIENT
  Sex: Female
  Weight: 77.11 kg

DRUGS (122)
  1. TRUVADA [Suspect]
     Active Substance: EMTRICITABINE\TENOFOVIR DISOPROXIL FUMARATE
     Indication: HIV infection
     Dosage: UNK
     Route: 048
     Dates: start: 20080902, end: 20130904
  2. COMPLERA [Suspect]
     Active Substance: EMTRICITABINE\RILPIVIRINE HYDROCHLORIDE\TENOFOVIR DISOPROXIL FUMARATE
     Indication: HIV infection
     Dosage: UNK
     Route: 048
     Dates: start: 2008
  3. COMPLERA [Suspect]
     Active Substance: EMTRICITABINE\RILPIVIRINE HYDROCHLORIDE\TENOFOVIR DISOPROXIL FUMARATE
     Dosage: UNK
     Route: 065
     Dates: start: 20160212, end: 20180309
  4. DICLOFENAC DIETHYLAMINE [Concomitant]
     Active Substance: DICLOFENAC DIETHYLAMINE
  5. XANAX [Concomitant]
     Active Substance: ALPRAZOLAM
  6. DULOXETINE [Concomitant]
     Active Substance: DULOXETINE
  7. ALBUTEROL [Concomitant]
     Active Substance: ALBUTEROL
  8. ALBUTEROL SULFATE [Concomitant]
     Active Substance: ALBUTEROL SULFATE
  9. ALENDRONATE SODIUM [Concomitant]
     Active Substance: ALENDRONATE SODIUM
  10. ALL DAY ALLERGY [Concomitant]
     Active Substance: CETIRIZINE HYDROCHLORIDE
  11. ALOCRIL [Concomitant]
     Active Substance: NEDOCROMIL SODIUM
  12. ALPRAZOLAM [Concomitant]
     Active Substance: ALPRAZOLAM
  13. AMOXICILLIN [Concomitant]
     Active Substance: AMOXICILLIN
  14. ASPIRIN [Concomitant]
     Active Substance: ASPIRIN
  15. ASPIRIN [Concomitant]
     Active Substance: ASPIRIN
  16. ASPIRIN [Concomitant]
     Active Substance: ASPIRIN
  17. ATORVASTATIN [Concomitant]
     Active Substance: ATORVASTATIN
  18. AZELASTINE [Concomitant]
     Active Substance: AZELASTINE
  19. AZITHROMYCIN [Concomitant]
     Active Substance: AZITHROMYCIN
  20. AZT [Concomitant]
     Active Substance: ZIDOVUDINE
  21. BENZONATATE [Concomitant]
     Active Substance: BENZONATATE
  22. BENZOYL PEROXIDE [Concomitant]
     Active Substance: BENZOYL PEROXIDE
  23. BETAMETHASONE [Concomitant]
     Active Substance: BETAMETHASONE
  24. BIKTARVY [Concomitant]
     Active Substance: BICTEGRAVIR SODIUM\EMTRICITABINE\TENOFOVIR ALAFENAMIDE FUMARATE
  25. BISACODYL [Concomitant]
     Active Substance: BISACODYL
  26. BISOPROLOL [Concomitant]
     Active Substance: BISOPROLOL
  27. BISOPROLOL FUMARATE [Concomitant]
     Active Substance: BISOPROLOL FUMARATE
  28. BISOPROLOL FUMARATE\HYDROCHLOROTHIAZIDE [Concomitant]
     Active Substance: BISOPROLOL FUMARATE\HYDROCHLOROTHIAZIDE
  29. BREO ELLIPTA [Concomitant]
     Active Substance: FLUTICASONE FUROATE\VILANTEROL TRIFENATATE
  30. BUPROPION [Concomitant]
     Active Substance: BUPROPION
  31. CALCIPOTRIENE [Concomitant]
     Active Substance: CALCIPOTRIENE
  32. CANASA [Concomitant]
     Active Substance: MESALAMINE
  33. CEPHALEXIN [Concomitant]
     Active Substance: CEPHALEXIN
  34. CETIRIZINE [Concomitant]
     Active Substance: CETIRIZINE HYDROCHLORIDE
  35. CLINDAMYCIN [Concomitant]
     Active Substance: CLINDAMYCIN
  36. CLINDAMYCIN PHOSPHATE [Concomitant]
     Active Substance: CLINDAMYCIN PHOSPHATE
  37. CLOBETASOL [Concomitant]
     Active Substance: CLOBETASOL
  38. CLOBETASOL PROPIONATE [Concomitant]
     Active Substance: CLOBETASOL PROPIONATE
  39. CLONAZEPAM [Concomitant]
     Active Substance: CLONAZEPAM
  40. CLOTRIMAZOLE [Concomitant]
     Active Substance: CLOTRIMAZOLE
  41. COMBIVIR [Concomitant]
     Active Substance: LAMIVUDINE\ZIDOVUDINE
  42. CROMOLYN SODIUM [Concomitant]
     Active Substance: CROMOLYN SODIUM
  43. CYCLOBENZAPRINE [Concomitant]
     Active Substance: CYCLOBENZAPRINE
  44. DENTA 5000 PLUS [Concomitant]
     Active Substance: SODIUM FLUORIDE
  45. DEXILANT [Concomitant]
     Active Substance: DEXLANSOPRAZOLE
  46. DICLOFENAC [Concomitant]
     Active Substance: DICLOFENAC
  47. DICYCLOMINE [Concomitant]
     Active Substance: DICYCLOMINE HYDROCHLORIDE
  48. DILTIAZEM [Concomitant]
     Active Substance: DILTIAZEM
  49. DOXYCYCLINE [Concomitant]
     Active Substance: DOXYCYCLINE
  50. DULERA [Concomitant]
     Active Substance: FORMOTEROL FUMARATE DIHYDRATE\MOMETASONE FUROATE
  51. DUPIXENT [Concomitant]
     Active Substance: DUPILUMAB
  52. EDURANT [Concomitant]
     Active Substance: RILPIVIRINE HYDROCHLORIDE
  53. EPINEPHRINE [Concomitant]
     Active Substance: EPINEPHRINE
  54. EPIVIR [Concomitant]
     Active Substance: LAMIVUDINE
  55. ESCITALOPRAM [Concomitant]
     Active Substance: ESCITALOPRAM OXALATE
  56. FLONASE [Concomitant]
     Active Substance: FLUTICASONE PROPIONATE
  57. FLUCONAZOLE [Concomitant]
     Active Substance: FLUCONAZOLE
  58. FLUOCINONIDE [Concomitant]
     Active Substance: FLUOCINONIDE
  59. FLUTICASONE [Concomitant]
     Active Substance: FLUTICASONE
  60. FML S.O.P. [Concomitant]
  61. GABAPENTIN [Concomitant]
     Active Substance: GABAPENTIN
  62. GUAIFENESIN [Concomitant]
     Active Substance: GUAIFENESIN
  63. HYDROCHLOROTHIAZIDE [Concomitant]
     Active Substance: HYDROCHLOROTHIAZIDE
  64. HYDROCORTISONE [Concomitant]
     Active Substance: HYDROCORTISONE
  65. HYDROXYZINE [Concomitant]
     Active Substance: HYDROXYZINE HYDROCHLORIDE
  66. IBUPROFEN [Concomitant]
     Active Substance: IBUPROFEN
  67. INVIRASE [Concomitant]
     Active Substance: SAQUINAVIR MESYLATE
  68. ISENTRESS [Concomitant]
     Active Substance: RALTEGRAVIR POTASSIUM
  69. ISOSORBIDE [Concomitant]
     Active Substance: ISOSORBIDE
  70. KETOTIFEN [Concomitant]
     Active Substance: KETOTIFEN
  71. LAMIVUDINE [Concomitant]
     Active Substance: LAMIVUDINE
  72. LEFLUNOMIDE [Concomitant]
     Active Substance: LEFLUNOMIDE
  73. LEVOFLOXACIN [Concomitant]
     Active Substance: LEVOFLOXACIN
  74. LIDOCAINE [Concomitant]
     Active Substance: LIDOCAINE
  75. LOPERAMIDE [Concomitant]
     Active Substance: LOPERAMIDE
  76. LOSARTAN [Concomitant]
     Active Substance: LOSARTAN
  77. LOSARTAN POTASSIUM [Concomitant]
     Active Substance: LOSARTAN POTASSIUM
  78. MESALAMINE [Concomitant]
     Active Substance: MESALAMINE
  79. METHYLPREDNISOLONE [Concomitant]
     Active Substance: METHYLPREDNISOLONE
  80. MIRTAZAPINE [Concomitant]
     Active Substance: MIRTAZAPINE
  81. MOMETASONE [Concomitant]
     Active Substance: MOMETASONE
  82. MUPIROCIN [Concomitant]
     Active Substance: MUPIROCIN
  83. NEOMYCIN;POLYMYXIN [Concomitant]
  84. NYSTATIN [Concomitant]
     Active Substance: NYSTATIN
  85. ODEFSEY [Concomitant]
     Active Substance: EMTRICITABINE\RILPIVIRINE HYDROCHLORIDE\TENOFOVIR ALAFENAMIDE FUMARATE
  86. OMEPRAZOLE [Concomitant]
     Active Substance: OMEPRAZOLE
  87. OXYCODONE [Concomitant]
     Active Substance: OXYCODONE
  88. PANTOPRAZOLE [Concomitant]
     Active Substance: PANTOPRAZOLE
  89. HIGH DENSITY POLYETHYLENE [Concomitant]
     Active Substance: HIGH DENSITY POLYETHYLENE
  90. POTASSIUM CHLORIDE [Concomitant]
     Active Substance: POTASSIUM CHLORIDE
  91. PREDNISONE [Concomitant]
     Active Substance: PREDNISONE
  92. PROCTOZONE HC [Concomitant]
     Active Substance: HYDROCORTISONE
  93. PROMETHAZINE [Concomitant]
     Active Substance: PROMETHAZINE HYDROCHLORIDE
  94. Q-TUSSIN [Concomitant]
     Active Substance: GUAIFENESIN
  95. QVAR [Concomitant]
     Active Substance: BECLOMETHASONE DIPROPIONATE
  96. WATER [Concomitant]
     Active Substance: WATER
  97. RIFAMPIN [Concomitant]
     Active Substance: RIFAMPIN
  98. ROBAFEN [GUAIFENESIN] [Concomitant]
  99. SALINE NASAL MIST [Concomitant]
  100. SERTRALINE [Concomitant]
     Active Substance: SERTRALINE HYDROCHLORIDE
  101. SPIRIVA [Concomitant]
     Active Substance: TIOTROPIUM BROMIDE MONOHYDRATE
  102. SULFAMETHOXAZOLE [Concomitant]
     Active Substance: SULFAMETHOXAZOLE
  103. SULFASALAZINE [Concomitant]
     Active Substance: SULFASALAZINE
  104. SYMBICORT [Concomitant]
     Active Substance: BUDESONIDE\FORMOTEROL FUMARATE DIHYDRATE
  105. TACROLIMUS [Concomitant]
     Active Substance: TACROLIMUS
  106. TESSALON [Concomitant]
     Active Substance: BENZONATATE
  107. TIVICAY [Concomitant]
     Active Substance: DOLUTEGRAVIR SODIUM
  108. TOBRAMYCIN [Concomitant]
     Active Substance: TOBRAMYCIN
  109. TRIAMCINOLONE [Concomitant]
     Active Substance: TRIAMCINOLONE
  110. VALACYCLOVIR [Concomitant]
     Active Substance: VALACYCLOVIR HYDROCHLORIDE
  111. ALBUTEROL SULFATE [Concomitant]
     Active Substance: ALBUTEROL SULFATE
  112. VENTOLIN HFA [Concomitant]
     Active Substance: ALBUTEROL SULFATE
  113. VIRACEPT [Concomitant]
     Active Substance: NELFINAVIR MESYLATE
  114. VIRAMUNE [Concomitant]
     Active Substance: NEVIRAPINE
  115. VITAMIN D NOS [Concomitant]
     Active Substance: VITAMIN D NOS
  116. VITAMIN D2 [Concomitant]
     Active Substance: ERGOCALCIFEROL
  117. VITAMIN D3 [Concomitant]
     Active Substance: CHOLECALCIFEROL
  118. XIIDRA [Concomitant]
     Active Substance: LIFITEGRAST
  119. ZAFIRLUKAST [Concomitant]
     Active Substance: ZAFIRLUKAST
  120. ZYFLO CR [Concomitant]
     Active Substance: ZILEUTON
  121. ZYRTEC [Concomitant]
     Active Substance: CETIRIZINE HYDROCHLORIDE
  122. TRAZODONE [Concomitant]
     Active Substance: TRAZODONE HYDROCHLORIDE

REACTIONS (16)
  - Osteoporosis [Not Recovered/Not Resolved]
  - Spinal fracture [Not Recovered/Not Resolved]
  - Pain [Not Recovered/Not Resolved]
  - Emotional distress [Not Recovered/Not Resolved]
  - Anxiety [Not Recovered/Not Resolved]
  - Anhedonia [Not Recovered/Not Resolved]
  - Arthralgia [Not Recovered/Not Resolved]
  - Pain in extremity [Not Recovered/Not Resolved]
  - Epicondylitis [Not Recovered/Not Resolved]
  - Gait disturbance [Not Recovered/Not Resolved]
  - Postural reflex impairment [Not Recovered/Not Resolved]
  - Depression [Not Recovered/Not Resolved]
  - Mood swings [Not Recovered/Not Resolved]
  - Restlessness [Not Recovered/Not Resolved]
  - Depressed mood [Not Recovered/Not Resolved]
  - Asthenia [Not Recovered/Not Resolved]
